FAERS Safety Report 6960898-X (Version None)
Quarter: 2010Q3

REPORT INFORMATION
  Report Type: 
  Country: None (occurrence: None)
  Receive Date: 20100901
  Receipt Date: 20100727
  Transmission Date: 20110219
  Serious: No
  Sender: FDA-Public Use
  Company Number: US-PFIZER INC-2010050068

PATIENT
  Sex: Male
  Weight: 95 kg

DRUGS (4)
  1. TIKOSYN [Suspect]
     Indication: ATRIAL FIBRILLATION
     Dosage: 250 UG, 2X/DAY
     Route: 048
     Dates: start: 20090924
  2. ZOCOR [Concomitant]
     Dosage: 10 MG, DAILY
  3. WARFARIN [Concomitant]
     Dosage: 2 MG, AS NEEDED
  4. VITAMIN D [Concomitant]
     Dosage: 1000 UNK, UNK

REACTIONS (2)
  - ERECTILE DYSFUNCTION [None]
  - LOSS OF LIBIDO [None]
